FAERS Safety Report 10384021 (Version 8)
Quarter: 2015Q2

REPORT INFORMATION
  Report Type: Report from Study
  Country: DE (occurrence: DE)
  Receive Date: 20140814
  Receipt Date: 20150430
  Transmission Date: 20150821
  Serious: Yes (Hospitalization, Other)
  Sender: FDA-Public Use
  Company Number: DE-ROCHE-1237108

PATIENT
  Age: 71 Year
  Sex: Female
  Weight: 67 kg

DRUGS (3)
  1. RIVAROXABAN [Concomitant]
     Active Substance: RIVAROXABAN
  2. TOCILIZUMAB [Suspect]
     Active Substance: TOCILIZUMAB
     Indication: RHEUMATOID ARTHRITIS
     Route: 042
     Dates: start: 20130205, end: 20130205
  3. ABATACEPT [Suspect]
     Active Substance: ABATACEPT
     Indication: RHEUMATOID ARTHRITIS
     Route: 065
     Dates: start: 20130603

REACTIONS (7)
  - Basal ganglia haemorrhage [Unknown]
  - Post procedural haematoma [Unknown]
  - Diverticulitis [Unknown]
  - Cerebral microangiopathy [Unknown]
  - Hypertension [Unknown]
  - Renal disorder [Unknown]
  - Pneumothorax [Unknown]

NARRATIVE: CASE EVENT DATE: 201303
